FAERS Safety Report 25145704 (Version 4)
Quarter: 2025Q2

REPORT INFORMATION
  Report Type: Spontaneous
  Country: US (occurrence: US)
  Receive Date: 20250401
  Receipt Date: 20250530
  Transmission Date: 20250717
  Serious: Yes (Other)
  Sender: CSL BEHRING
  Company Number: US-BEH-2025199999

PATIENT
  Age: 46 Year
  Sex: Female

DRUGS (3)
  1. HIZENTRA [Suspect]
     Active Substance: HUMAN IMMUNOGLOBULIN G
     Indication: Immunodeficiency common variable
     Dosage: 10 G, QW
     Route: 058
     Dates: start: 20250318
  2. HIZENTRA [Suspect]
     Active Substance: HUMAN IMMUNOGLOBULIN G
     Dosage: 10 G, QW
     Route: 058
  3. HIZENTRA [Suspect]
     Active Substance: HUMAN IMMUNOGLOBULIN G
     Route: 065
     Dates: start: 20250401

REACTIONS (11)
  - Infusion site pruritus [Unknown]
  - Infusion site erythema [Recovered/Resolved]
  - Infusion site erythema [Unknown]
  - Infusion site nodule [Unknown]
  - Abdominal distension [Unknown]
  - Dyspnoea [Unknown]
  - Joint swelling [Unknown]
  - Infusion site erythema [Recovered/Resolved]
  - Infusion site pruritus [Not Recovered/Not Resolved]
  - Patient dissatisfaction with treatment [Unknown]
  - Incorrect drug administration rate [Unknown]

NARRATIVE: CASE EVENT DATE: 20250318
